FAERS Safety Report 17844214 (Version 2)
Quarter: 2021Q2

REPORT INFORMATION
  Report Type: Spontaneous
  Country: US (occurrence: US)
  Receive Date: 20200601
  Receipt Date: 20210513
  Transmission Date: 20210717
  Serious: No
  Sender: FDA-Public Use
  Company Number: US-UCBSA-2020006161

PATIENT
  Age: 61 Year
  Sex: Female

DRUGS (2)
  1. CIMZIA [Suspect]
     Active Substance: CERTOLIZUMAB PEGOL
     Indication: PRODUCT USED FOR UNKNOWN INDICATION
     Dosage: UNK
     Route: 058
     Dates: start: 201907
  2. CIMZIA [Suspect]
     Active Substance: CERTOLIZUMAB PEGOL
     Dosage: 200 MILLIGRAM, UNK
     Route: 058
     Dates: start: 202001

REACTIONS (4)
  - Depressive symptom [Unknown]
  - Injection site haemorrhage [Unknown]
  - Injection site rash [Unknown]
  - Off label use [Unknown]

NARRATIVE: CASE EVENT DATE: 201907
